FAERS Safety Report 18542684 (Version 2)
Quarter: 2020Q4

REPORT INFORMATION
  Report Type: Spontaneous
  Country: DE (occurrence: DE)
  Receive Date: 20201124
  Receipt Date: 20201216
  Transmission Date: 20210114
  Serious: Yes (Hospitalization, Other)
  Sender: FDA-Public Use
  Company Number: DE-MYLANLABS-2020M1096431

PATIENT
  Age: 69 Year
  Sex: Male
  Weight: 56 kg

DRUGS (10)
  1. LERCANIDIPINE                      /01366402/ [Concomitant]
     Active Substance: LERCANIDIPINE HYDROCHLORIDE
     Dosage: 10 MILLIGRAM (0-0-1-0), 10 MG, 1 TIME DAILY, 0-0-1-0
     Route: 065
  2. PREDNISOLONE. [Suspect]
     Active Substance: PREDNISOLONE
     Indication: PRODUCT USED FOR UNKNOWN INDICATION
     Dosage: 20 MILLIGRAM (1-0-0-0), 20 MG, 1 TIME DAILY, 1-0-0-0
     Route: 048
  3. CANDESARTAN. [Concomitant]
     Active Substance: CANDESARTAN
     Dosage: 16 MILLIGRAM, QD (1-0-0-0)
     Route: 048
  4. JODID [Concomitant]
     Active Substance: IODINE
     Dosage: 200 MICROGRAM (1-0-0-0)
     Route: 048
  5. APIXABAN [Concomitant]
     Active Substance: APIXABAN
     Dosage: 5 MILLIGRAM (1-0-1-0), 5 MG, 1 TIME DAILY, 1-0-1-0
  6. BISOPROLOL [Concomitant]
     Active Substance: BISOPROLOL
     Dosage: 5 MILLIGRAM (1-0-0.5-0)
     Route: 048
  7. KALINOR-RETARD P [Concomitant]
     Dosage: 600 MILLIGRAM (1-1-0-0),600 MG, 2 TIMES DAILY, 1-1-0-0
     Route: 065
  8. BUDESONIDE. [Suspect]
     Active Substance: BUDESONIDE
     Indication: PRODUCT USED FOR UNKNOWN INDICATION
     Dosage: UNK(2-0-2-0)
     Route: 065
  9. PANTOPRAZOLE [Concomitant]
     Active Substance: PANTOPRAZOLE
     Dosage: 20 MILLIGRAM (1-0-0-0), 20 MG, 1 TIME DAILY, 1-0-0-0
     Route: 065
  10. ARCOXIA [Suspect]
     Active Substance: ETORICOXIB
     Indication: PRODUCT USED FOR UNKNOWN INDICATION
     Dosage: 60 MILLIGRAM (1-0-0-0), 60 MG, 1 TIME DAILY, 1-0-0-0

REACTIONS (5)
  - Atrial fibrillation [Unknown]
  - Tachycardia [Unknown]
  - Arrhythmia [Unknown]
  - Condition aggravated [Unknown]
  - Pneumonia [Unknown]
